FAERS Safety Report 5742557-4 (Version None)
Quarter: 2008Q2

REPORT INFORMATION
  Report Type: 
  Country: None (occurrence: None)
  Receive Date: 20080515
  Receipt Date: 20080506
  Transmission Date: 20081010
  Serious: Yes (Hospitalization)
  Sender: FDA-Public Use
  Company Number: 2008AP000309

PATIENT
  Age: 52 Year
  Sex: Male

DRUGS (20)
  1. PAROXETINE HCL [Suspect]
     Dosage: SEE IMAGE
     Route: 048
     Dates: start: 19960701
  2. PAROXETINE HCL [Suspect]
     Dosage: SEE IMAGE
     Route: 048
     Dates: start: 19960701
  3. PAROXETINE HCL [Suspect]
     Dosage: SEE IMAGE
     Route: 048
     Dates: start: 19990407
  4. PAROXETINE HCL [Suspect]
     Dosage: SEE IMAGE
     Route: 048
     Dates: start: 20040203
  5. PAROXETINE HCL [Suspect]
     Dosage: SEE IMAGE
     Route: 048
     Dates: start: 20040312
  6. PAROXETINE HCL [Suspect]
     Dosage: SEE IMAGE
     Route: 048
     Dates: start: 20050101
  7. PAROXETINE HCL [Suspect]
     Dosage: SEE IMAGE
     Route: 048
     Dates: start: 20050101
  8. PAROXETINE HCL [Suspect]
     Dosage: SEE IMAGE
     Route: 048
     Dates: start: 20050412
  9. AMITRIPTLINE HCL [Concomitant]
  10. CITALOPRAM HYDROBROMIDE [Concomitant]
  11. DIAZEPAM [Concomitant]
  12. LOFEPRAMINE HYDROCHLORIDE [Concomitant]
  13. FLUOXETINE HYDROCHLORIDE [Concomitant]
  14. FLUPENTIXOL (FLUPENTIXOL) [Concomitant]
  15. PROMETHAZINE [Concomitant]
  16. HYPERICUM EXTRACT (HYPERICUM EXTRACT) [Concomitant]
  17. ZOPICLONE (ZOPICLONE) [Concomitant]
  18. BELLASPON RETARD (BELLASPON RETARD) [Concomitant]
  19. IMIPRAMINE [Concomitant]
  20. MIANSERIN (MIANSERIN) [Concomitant]

REACTIONS (52)
  - ABDOMINAL PAIN UPPER [None]
  - ABNORMAL DREAMS [None]
  - ADJUSTMENT DISORDER [None]
  - AFFECT LABILITY [None]
  - AGITATION [None]
  - ANXIETY [None]
  - ARTHRALGIA [None]
  - CHEST PAIN [None]
  - CIRCULATORY COLLAPSE [None]
  - CONVULSION [None]
  - CYCLOTHYMIC DISORDER [None]
  - DECREASED APPETITE [None]
  - DECREASED INTEREST [None]
  - DEPENDENCE [None]
  - DIARRHOEA [None]
  - DISTURBANCE IN ATTENTION [None]
  - DIZZINESS [None]
  - DUODENITIS [None]
  - EARLY MORNING AWAKENING [None]
  - ERUCTATION [None]
  - FEAR [None]
  - GASTROOESOPHAGEAL REFLUX DISEASE [None]
  - HEADACHE [None]
  - HEARING AID USER [None]
  - HEMIPARESIS [None]
  - HYPERHIDROSIS [None]
  - HYPOACUSIS [None]
  - HYPOAESTHESIA [None]
  - ILL-DEFINED DISORDER [None]
  - INCORRECT DOSE ADMINISTERED [None]
  - INFLUENZA [None]
  - INITIAL INSOMNIA [None]
  - LOSS OF CONSCIOUSNESS [None]
  - MALAISE [None]
  - MEMORY IMPAIRMENT [None]
  - MUSCLE TWITCHING [None]
  - NIGHT SWEATS [None]
  - NIGHTMARE [None]
  - OTOSCLEROSIS [None]
  - PALPITATIONS [None]
  - PANIC ATTACK [None]
  - PANIC REACTION [None]
  - PARAESTHESIA [None]
  - RESTLESSNESS [None]
  - SENSORY DISTURBANCE [None]
  - SLEEP DISORDER [None]
  - STRESS [None]
  - SUICIDAL IDEATION [None]
  - TINNITUS [None]
  - TREMOR [None]
  - VERTIGO [None]
  - WITHDRAWAL SYNDROME [None]
